FAERS Safety Report 8432409-3 (Version None)
Quarter: 2012Q2

REPORT INFORMATION
  Report Type: 
  Country: None (occurrence: None)
  Receive Date: 20120613
  Receipt Date: 20120608
  Transmission Date: 20120825
  Serious: Yes (Hospitalization, Other)
  Sender: FDA-Public Use
  Company Number: US-PFIZER INC-2012139233

PATIENT

DRUGS (2)
  1. HEROIN [Suspect]
     Dosage: UNK
  2. XANAX [Suspect]
     Dosage: UNK

REACTIONS (3)
  - RESPIRATORY DISTRESS [None]
  - DRUG WITHDRAWAL CONVULSIONS [None]
  - DRUG ABUSE [None]
